FAERS Safety Report 5152244-1 (Version None)
Quarter: 2006Q4

REPORT INFORMATION
  Report Type: 
  Country: None (occurrence: None)
  Receive Date: 20061116
  Receipt Date: 20060801
  Transmission Date: 20070319
  Serious: Yes (Hospitalization, Other)
  Sender: FDA-Public Use
  Company Number: PHNU2006DE02671

PATIENT
  Age: 71 Year
  Sex: Male

DRUGS (4)
  1. ALKERAN [Suspect]
     Indication: PLASMACYTOMA
     Dosage: 25 MG, QMO FOR 7 DAYS
     Route: 042
     Dates: start: 20050418, end: 20060725
  2. BENDAMUSTINE [Suspect]
     Indication: PLASMACYTOMA
     Dosage: 200 MG ON DAY 1 AND 2 EVERY 4 WEEKS
     Route: 042
     Dates: start: 20051107, end: 20060727
  3. PREDNISONE TAB [Suspect]
     Indication: PLASMACYTOMA
     Dosage: 100 MG ON DAY 1 TO 4 EVERY 4 WEEKS
     Route: 042
     Dates: start: 20050418, end: 20060729
  4. ZOMETA [Suspect]
     Indication: MULTIPLE MYELOMA
     Dosage: 4 MG, UNK
     Route: 042
     Dates: start: 20050416, end: 20060725

REACTIONS (5)
  - DENTAL OPERATION [None]
  - OSTEONECROSIS [None]
  - PERIODONTITIS [None]
  - SEQUESTRECTOMY [None]
  - TOOTH EXTRACTION [None]
